FAERS Safety Report 21422980 (Version 7)
Quarter: 2023Q2

REPORT INFORMATION
  Report Type: Spontaneous
  Country: CA (occurrence: CA)
  Receive Date: 20221007
  Receipt Date: 20230609
  Transmission Date: 20230722
  Serious: Yes (Hospitalization, Other)
  Sender: FDA-Public Use
  Company Number: CA-PFIZER INC-PV202200076381

PATIENT
  Age: 9 Year
  Sex: Male

DRUGS (3)
  1. RAPAMUNE [Suspect]
     Active Substance: SIROLIMUS
     Indication: Sickle cell disease
     Dosage: 2 MG, DAILY
  2. RAPAMUNE [Suspect]
     Active Substance: SIROLIMUS
     Indication: Immunosuppression
  3. RAPAMUNE [Suspect]
     Active Substance: SIROLIMUS
     Indication: Stem cell therapy

REACTIONS (3)
  - Transplant [Unknown]
  - Off label use [Unknown]
  - Off label use [Unknown]
